FAERS Safety Report 8067332-X (Version None)
Quarter: 2012Q1

REPORT INFORMATION
  Report Type: 
  Country: None (occurrence: None)
  Receive Date: 20120124
  Receipt Date: 20120113
  Transmission Date: 20120608
  Serious: Yes (Hospitalization)
  Sender: FDA-Public Use
  Company Number: FR-GLAXOSMITHKLINE-B0775163A

PATIENT
  Sex: Female

DRUGS (15)
  1. ATOVAQUONE [Suspect]
     Indication: PNEUMOCYSTIS JIROVECI INFECTION
     Dosage: 750MG TWICE PER DAY
     Route: 048
     Dates: start: 20111129
  2. RISPERDAL [Concomitant]
     Dosage: 1MG PER DAY
     Route: 048
  3. REPAGLINIDE [Concomitant]
  4. MEROPENEM [Suspect]
     Indication: MENINGITIS BACTERIAL
     Dosage: 2G THREE TIMES PER DAY
     Route: 042
     Dates: start: 20111130, end: 20111209
  5. AUGMENTIN '125' [Concomitant]
     Indication: COUGH
     Dates: start: 20111115, end: 20111122
  6. MIRTAZAPINE [Concomitant]
     Dosage: 15MG PER DAY
  7. PENTACARINAT [Concomitant]
  8. ALLOPURINOL [Concomitant]
     Dosage: 30MG PER DAY
  9. PIPERACILLIN/TAZOBACTAM [Concomitant]
     Indication: PSEUDOMONAS INFECTION
     Dates: start: 20111128, end: 20111130
  10. LASIX [Concomitant]
     Dosage: 20MG PER DAY
  11. PREDNISONE TAB [Concomitant]
     Dosage: 10MG PER DAY
  12. DEPAKOTE [Concomitant]
     Dosage: 500MG TWICE PER DAY
  13. VALACYCLOVIR HYDROCHLORIDE [Concomitant]
     Dosage: 500MG TWICE PER DAY
  14. CIPROFLOXACIN HCL [Suspect]
     Indication: MENINGITIS BACTERIAL
     Dosage: 400MG THREE TIMES PER DAY
     Route: 042
     Dates: start: 20111128, end: 20111209
  15. NEXIUM [Concomitant]
     Dosage: 20MG PER DAY

REACTIONS (1)
  - LEUKOPENIA [None]
